FAERS Safety Report 5431038-3 (Version None)
Quarter: 2007Q3

REPORT INFORMATION
  Report Type: 
  Country: None (occurrence: None)
  Receive Date: 20070830
  Receipt Date: 20070119
  Transmission Date: 20080115
  Serious: No
  Sender: FDA-Public Use
  Company Number: A0636319A

PATIENT
  Age: 35 Year
  Sex: Male

DRUGS (5)
  1. WELLBUTRIN XL [Suspect]
     Indication: DEPRESSION
     Dosage: 150MG TWICE PER DAY
     Route: 048
     Dates: start: 20060206
  2. LEVITRA [Concomitant]
  3. ACEBUTOLOL [Concomitant]
  4. DIOVAN HCT [Concomitant]
  5. SEROQUEL [Concomitant]

REACTIONS (1)
  - DRUG SCREEN POSITIVE [None]
